FAERS Safety Report 8920518 (Version 1)
Quarter: 2012Q4

REPORT INFORMATION
  Report Type: 
  Country: US (occurrence: US)
  Receive Date: 20121122
  Receipt Date: 20121122
  Transmission Date: 20130627
  Serious: No
  Sender: FDA-Public Use
  Company Number: US-ELI_LILLY_AND_COMPANY-US201210000456

PATIENT
  Sex: Male

DRUGS (3)
  1. CYMBALTA [Suspect]
     Indication: DEPRESSION
     Dosage: 20 mg, bid
  2. CYMBALTA [Suspect]
     Dosage: 30 mg, bid
  3. CIALIS [Suspect]
     Dosage: 10 mg, UNK

REACTIONS (9)
  - Pain [Unknown]
  - Myalgia [Unknown]
  - Anxiety [Unknown]
  - Obsessive thoughts [Unknown]
  - Insomnia [Unknown]
  - Decreased appetite [Unknown]
  - Restlessness [Unknown]
  - Diarrhoea [Unknown]
  - Visual impairment [Unknown]
